FAERS Safety Report 17471451 (Version 1)
Quarter: 2020Q1

REPORT INFORMATION
  Report Type: Spontaneous
  Country: FR (occurrence: FR)
  Receive Date: 20200228
  Receipt Date: 20200228
  Transmission Date: 20200409
  Serious: Yes (Hospitalization)
  Sender: FDA-Public Use
  Company Number: FR-TEVA-2020-FR-1191898

PATIENT
  Age: 69 Year
  Sex: Male

DRUGS (10)
  1. MODOPAR 250 (200 MG/50 MG), GELULE [Suspect]
     Active Substance: BENSERAZIDE HYDROCHLORIDE\LEVODOPA
     Indication: PARKINSON^S DISEASE
     Dosage: 3 DOSAGE FORMS
     Route: 048
  2. ESIDREX [Concomitant]
     Active Substance: HYDROCHLOROTHIAZIDE
     Dosage: 1 DOSAGE FORMS
     Route: 048
     Dates: end: 20190806
  3. DUOPLAVIN 75 MG/75 MG, COMPRIME PELLICULE [Concomitant]
     Active Substance: ASPIRIN\CLOPIDOGREL
     Dosage: 1 DOSAGE FORMS
     Route: 048
  4. VALSARTAN. [Concomitant]
     Active Substance: VALSARTAN
     Dosage: 160 MG
     Route: 048
     Dates: end: 20190806
  5. AZILECT [Suspect]
     Active Substance: RASAGILINE MESYLATE
     Indication: PARKINSON^S DISEASE
     Dosage: 1 DOSAGE FORMS
     Route: 048
     Dates: end: 20190806
  6. CELLUVISC 4 MG/0,4 ML, COLLYRE EN RECIPIENT UNIDOSE [Concomitant]
     Dosage: 8 DOSAGE FORMS
     Route: 047
  7. MANIDIPINE (CHLORHYDRATE DE) [Concomitant]
     Active Substance: MANIDIPINE HYDROCHLORIDE
     Dosage: 20 MG
     Route: 048
     Dates: end: 20190806
  8. VENLAFAXINE [Concomitant]
     Active Substance: VENLAFAXINE HYDROCHLORIDE
     Dosage: 75 MG
     Route: 048
  9. PARKINANE L P 5 MG, GELULE A LIBERATION PROLONGEE [Concomitant]
     Active Substance: TRIHEXYPHENIDYL HYDROCHLORIDE
     Dosage: 1 DOSAGE FORMS
     Route: 048
  10. KALEORID LP 1000 MG, COMPRIME A LIBERATION PROLONGEE [Concomitant]
     Active Substance: POTASSIUM CHLORIDE
     Dosage: 2 DOSAGE FORMS
     Route: 048
     Dates: end: 20190806

REACTIONS (3)
  - General physical health deterioration [Not Recovered/Not Resolved]
  - Headache [Recovered/Resolved]
  - Hallucination, visual [Recovered/Resolved]

NARRATIVE: CASE EVENT DATE: 201906
